FAERS Safety Report 6168655-1 (Version None)
Quarter: 2009Q2

REPORT INFORMATION
  Report Type: 
  Country: None (occurrence: None)
  Receive Date: 20090424
  Receipt Date: 20090424
  Transmission Date: 20091009
  Serious: No
  Sender: FDA-Public Use
  Company Number: None

PATIENT
  Age: 73 Year
  Sex: Female

DRUGS (1)
  1. SINEMET [Suspect]
     Dosage: 25/100 QID ORAL
     Route: 048

REACTIONS (2)
  - NO THERAPEUTIC RESPONSE [None]
  - PARKINSON'S DISEASE [None]
